FAERS Safety Report 14016661 (Version 1)
Quarter: 2017Q3

REPORT INFORMATION
  Report Type: Spontaneous
  Country: US (occurrence: US)
  Receive Date: 20170927
  Receipt Date: 20170927
  Transmission Date: 20171128
  Serious: No
  Sender: FDA-Public Use
  Company Number: US-PFIZER INC-2017413648

PATIENT
  Sex: Female
  Weight: 95 kg

DRUGS (1)
  1. MORPHINE SULFATE. [Suspect]
     Active Substance: MORPHINE SULFATE
     Dosage: UNKNOWN DOSE

REACTIONS (3)
  - Intentional product misuse [Unknown]
  - Withdrawal syndrome [Unknown]
  - Insomnia [Unknown]
